FAERS Safety Report 13702191 (Version 1)
Quarter: 2017Q2

REPORT INFORMATION
  Report Type: Report from Study
  Country: None (occurrence: US)
  Receive Date: 20170629
  Receipt Date: 20170629
  Transmission Date: 20170830
  Serious: No
  Sender: FDA-Public Use
  Company Number: US-IPSEN BIOPHARMACEUTICALS, INC.-2015-0123

PATIENT
  Sex: Male
  Weight: 30.4 kg

DRUGS (4)
  1. INCRELEX [Suspect]
     Active Substance: MECASERMIN
     Indication: INSULIN-LIKE GROWTH FACTOR DECREASED
     Dosage: 78.94 MCG/KG
     Route: 058
     Dates: start: 20141226, end: 2015
  2. SYNTHROID [Concomitant]
     Active Substance: LEVOTHYROXINE SODIUM
     Indication: PRODUCT USED FOR UNKNOWN INDICATION
     Dosage: NOT REPORTED
     Route: 065
  3. INCRELEX [Suspect]
     Active Substance: MECASERMIN
     Dosage: 118.42 MCG/KG
     Route: 058
     Dates: start: 201501
  4. INCRELEX [Suspect]
     Active Substance: MECASERMIN
     Dosage: 98.68 MCG/KG
     Route: 058
     Dates: start: 201501, end: 2015

REACTIONS (3)
  - Hyperhidrosis [Unknown]
  - Dizziness [None]
  - Fatigue [None]
